FAERS Safety Report 9766614 (Version 1)
Quarter: 2013Q4

REPORT INFORMATION
  Report Type: Spontaneous
  Country: US (occurrence: US)
  Receive Date: 20131217
  Receipt Date: 20131217
  Transmission Date: 20140711
  Serious: Yes (Other)
  Sender: FDA-Public Use
  Company Number: US-GLAXOSMITHKLINE-A1029182A

PATIENT
  Age: 65 Year
  Sex: Female

DRUGS (1)
  1. VOTRIENT [Suspect]
     Indication: RENAL CANCER
     Dosage: 800MG PER DAY
     Dates: start: 201211

REACTIONS (8)
  - Pancreatic carcinoma [Unknown]
  - Skin discolouration [Unknown]
  - Abdominal discomfort [Unknown]
  - Fatigue [Unknown]
  - Contusion [Unknown]
  - Vertebroplasty [Unknown]
  - Radiotherapy [Unknown]
  - Hair colour changes [Unknown]
